FAERS Safety Report 10593028 (Version 1)
Quarter: 2014Q4

REPORT INFORMATION
  Report Type: Spontaneous
  Country: US (occurrence: None)
  Receive Date: 20141118
  Receipt Date: 20141118
  Transmission Date: 20150529
  Serious: No
  Sender: FDA-Public Use
  Company Number: None

PATIENT
  Age: 35 Year
  Sex: Female
  Weight: 74.84 kg

DRUGS (1)
  1. RIZATRIPTAN [Suspect]
     Active Substance: RIZATRIPTAN
     Indication: MIGRAINE
     Dosage: 1 TAB AS NEEDED TAKEN BY MOUTH
     Route: 048
     Dates: start: 20141107, end: 20141107

REACTIONS (7)
  - Palpitations [None]
  - Dyspnoea [None]
  - Heart rate irregular [None]
  - Chest discomfort [None]
  - Anxiety [None]
  - Chest pain [None]
  - Restlessness [None]

NARRATIVE: CASE EVENT DATE: 20141107
